FAERS Safety Report 11345037 (Version 2)
Quarter: 2015Q4

REPORT INFORMATION
  Report Type: Spontaneous
  Country: GB (occurrence: GB)
  Receive Date: 20150806
  Receipt Date: 20151005
  Transmission Date: 20160304
  Serious: Yes (Other)
  Sender: FDA-Public Use
  Company Number: CHNY2015GB000454

PATIENT

DRUGS (5)
  1. ZAPAIN [Concomitant]
     Active Substance: ACETAMINOPHEN\CODEINE PHOSPHATE
     Indication: PRODUCT USED FOR UNKNOWN INDICATION
     Dosage: UNK
     Route: 065
  2. MOVELAT [Concomitant]
     Indication: PRODUCT USED FOR UNKNOWN INDICATION
     Dosage: UNK
     Route: 065
  3. FLUCLOXACILLIN [Concomitant]
     Active Substance: FLUCLOXACILLIN
     Indication: PRODUCT USED FOR UNKNOWN INDICATION
     Dosage: UNK
     Route: 065
  4. LACTULOSE. [Concomitant]
     Active Substance: LACTULOSE
     Indication: PRODUCT USED FOR UNKNOWN INDICATION
     Dosage: UNK
     Route: 065
  5. SCOPODERM TTS [Suspect]
     Active Substance: SCOPOLAMINE
     Indication: DROOLING
     Dosage: 1 MG, Q72H
     Route: 062
     Dates: start: 20150722, end: 20150723

REACTIONS (3)
  - Asthenia [Recovered/Resolved]
  - Posture abnormal [Recovered/Resolved]
  - Urinary incontinence [Recovered/Resolved]

NARRATIVE: CASE EVENT DATE: 20150722
